FAERS Safety Report 12138561 (Version 2)
Quarter: 2016Q1

REPORT INFORMATION
  Report Type: Spontaneous
  Country: PE (occurrence: PE)
  Receive Date: 20160302
  Receipt Date: 20160309
  Transmission Date: 20160526
  Serious: No
  Sender: FDA-Public Use
  Company Number: PE-PFIZER INC-2016122136

PATIENT
  Age: 82 Year
  Sex: Female

DRUGS (1)
  1. LYRICA [Suspect]
     Active Substance: PREGABALIN
     Indication: PAIN
     Dosage: 1 DF (1 CAPSULE OF 75MG), DAILY

REACTIONS (4)
  - Musculoskeletal pain [Recovered/Resolved]
  - Back pain [Recovered/Resolved]
  - Product use issue [Unknown]
  - Bone pain [Unknown]
